FAERS Safety Report 6827596-4 (Version None)
Quarter: 2010Q3

REPORT INFORMATION
  Report Type: 
  Country: None (occurrence: None)
  Receive Date: 20100709
  Receipt Date: 20070122
  Transmission Date: 20110219
  Serious: No
  Sender: FDA-Public Use
  Company Number: US-PFIZER INC-2007006980

PATIENT
  Sex: Male
  Weight: 104.33 kg

DRUGS (6)
  1. CHANTIX [Suspect]
     Indication: SMOKING CESSATION THERAPY
     Dates: start: 20061201
  2. GLYBURIDE [Concomitant]
  3. GLUCOPHAGE [Concomitant]
  4. VALSARTAN [Concomitant]
  5. ADVAIR DISKUS 100/50 [Concomitant]
  6. MONTELUKAST SODIUM [Concomitant]

REACTIONS (1)
  - NIGHTMARE [None]
